FAERS Safety Report 7131439-1 (Version None)
Quarter: 2010Q4

REPORT INFORMATION
  Report Type: 
  Country: None (occurrence: None)
  Receive Date: 20101201
  Receipt Date: 20101118
  Transmission Date: 20110411
  Serious: Yes (Disabling, Other)
  Sender: FDA-Public Use
  Company Number: US-CELGENEUS-163-21880-10110771

PATIENT
  Sex: Male

DRUGS (5)
  1. REVLIMID [Suspect]
     Indication: MULTIPLE MYELOMA
     Route: 048
     Dates: start: 20090801, end: 20100301
  2. DECADRON [Suspect]
     Indication: MULTIPLE MYELOMA
     Route: 065
     Dates: start: 20040101
  3. DECADRON [Suspect]
     Route: 065
     Dates: start: 20080101
  4. ZOMETA [Suspect]
     Indication: MULTIPLE MYELOMA
     Route: 051
     Dates: start: 20080501, end: 20090801
  5. CYTOXAN [Concomitant]
     Indication: MULTIPLE MYELOMA
     Route: 048
     Dates: start: 20100501

REACTIONS (1)
  - OSTEONECROSIS OF JAW [None]
